FAERS Safety Report 10170081 (Version 2)
Quarter: 2014Q2

REPORT INFORMATION
  Report Type: Report from Study
  Country: CH (occurrence: CH)
  Receive Date: 20140513
  Receipt Date: 20140513
  Transmission Date: 20141212
  Serious: Yes (Death, Other)
  Sender: FDA-Public Use
  Company Number: CH-TEVA-467056USA

PATIENT
  Age: 83 Year
  Sex: Male

DRUGS (3)
  1. BENDAMUSTINE [Suspect]
     Indication: LYMPHOMA
     Dosage: 125 MILLIGRAM DAILY;
     Route: 042
     Dates: start: 20120601
  2. RITUXIMAB [Suspect]
     Indication: LYMPHOMA
     Dosage: 700 MILLIGRAM DAILY;
     Route: 042
     Dates: start: 20120601
  3. LENALIDOMIDE [Suspect]
     Indication: LYMPHOMA
     Dosage: 10 MILLIGRAM DAILY;
     Route: 048
     Dates: start: 20120601

REACTIONS (1)
  - Myelodysplastic syndrome [Fatal]
